FAERS Safety Report 13837896 (Version 1)
Quarter: 2017Q3

REPORT INFORMATION
  Report Type: Spontaneous
  Country: US (occurrence: US)
  Receive Date: 20170807
  Receipt Date: 20170807
  Transmission Date: 20171127
  Serious: Yes (Other)
  Sender: FDA-Public Use
  Company Number: US-BEH-2017082490

PATIENT
  Age: 57 Year
  Sex: Female
  Weight: 118.37 kg

DRUGS (29)
  1. EPINEPHRINE. [Concomitant]
     Active Substance: EPINEPHRINE
  2. BOTOX [Concomitant]
     Active Substance: ONABOTULINUMTOXINA
  3. GABAPENTIN. [Concomitant]
     Active Substance: GABAPENTIN
  4. NALTREXONE [Concomitant]
     Active Substance: NALTREXONE
  5. MULTIVITAMINS W/MINERALS [Concomitant]
     Active Substance: MINERALS\VITAMINS
  6. LMX                                /00033401/ [Concomitant]
  7. ACARBOSE. [Concomitant]
     Active Substance: ACARBOSE
  8. KLOR-CON [Concomitant]
     Active Substance: POTASSIUM CHLORIDE
  9. SEROQUEL [Concomitant]
     Active Substance: QUETIAPINE FUMARATE
  10. VITAMIN D                          /00107901/ [Concomitant]
     Active Substance: ERGOCALCIFEROL
  11. SINGULAIR [Concomitant]
     Active Substance: MONTELUKAST SODIUM
  12. NASONEX [Concomitant]
     Active Substance: MOMETASONE FUROATE
  13. SIMVASTATIN. [Concomitant]
     Active Substance: SIMVASTATIN
  14. HIZENTRA [Suspect]
     Active Substance: HUMAN IMMUNOGLOBULIN G
     Dosage: UNK
     Route: 058
  15. DIPHENHYDRAMINE. [Concomitant]
     Active Substance: DIPHENHYDRAMINE
  16. ZOFRAN [Concomitant]
     Active Substance: ONDANSETRON HYDROCHLORIDE
  17. LAMOTRIGINE. [Concomitant]
     Active Substance: LAMOTRIGINE
  18. OMEPRAZOLE. [Concomitant]
     Active Substance: OMEPRAZOLE
  19. VITAMIN B12 [Concomitant]
     Active Substance: CYANOCOBALAMIN
  20. OCTREOTIDE. [Concomitant]
     Active Substance: OCTREOTIDE
  21. HIZENTRA [Suspect]
     Active Substance: HUMAN IMMUNOGLOBULIN G
     Indication: IMMUNODEFICIENCY COMMON VARIABLE
     Dosage: 8 G, BIW
     Route: 058
     Dates: start: 20140206
  22. AZO CRANBERRY [Concomitant]
     Active Substance: DIETARY SUPPLEMENT
  23. CYMBALTA [Concomitant]
     Active Substance: DULOXETINE HYDROCHLORIDE
  24. CELEBREX [Concomitant]
     Active Substance: CELECOXIB
  25. OMEGA 3 FISH OIL                   /01334101/ [Concomitant]
     Active Substance: FISH OIL
  26. IRON [Concomitant]
     Active Substance: IRON
  27. VANIQA                             /00936001/ [Concomitant]
  28. LIDOCAINE. [Concomitant]
     Active Substance: LIDOCAINE
  29. NAPROXEN. [Concomitant]
     Active Substance: NAPROXEN

REACTIONS (5)
  - Kidney infection [Not Recovered/Not Resolved]
  - Postural orthostatic tachycardia syndrome [Not Recovered/Not Resolved]
  - Pneumonia [Not Recovered/Not Resolved]
  - Cystitis [Not Recovered/Not Resolved]
  - Supraventricular extrasystoles [Not Recovered/Not Resolved]

NARRATIVE: CASE EVENT DATE: 20170628
